FAERS Safety Report 8539611-0 (Version None)
Quarter: 2012Q3

REPORT INFORMATION
  Report Type: 
  Country: None (occurrence: None)
  Receive Date: 20120726
  Receipt Date: 20120720
  Transmission Date: 20120928
  Serious: Yes (Hospitalization, Other)
  Sender: FDA-Public Use
  Company Number: JP-PFIZER INC-2012168876

PATIENT
  Age: 27 Year
  Sex: Male

DRUGS (1)
  1. ZITHROMAX [Suspect]
     Indication: PNEUMONIA MYCOPLASMAL
     Dosage: 2000 UNK, DAILY
     Route: 048

REACTIONS (2)
  - CONDITION AGGRAVATED [None]
  - HYPERTHERMIA [None]
